FAERS Safety Report 11058944 (Version 1)
Quarter: 2015Q2

REPORT INFORMATION
  Report Type: Spontaneous
  Country: US (occurrence: None)
  Receive Date: 20150422
  Receipt Date: 20150422
  Transmission Date: 20150821
  Serious: Yes (Life-Threatening)
  Sender: FDA-Public Use
  Company Number: None

PATIENT
  Age: 38 Year
  Sex: Female
  Weight: 53.07 kg

DRUGS (3)
  1. DAILY MULTIVITAMIN [Concomitant]
     Active Substance: VITAMINS
  2. NATUR-THROID [Concomitant]
  3. NITROFURANTOIN MONOHYDRATE/MACROCRYSTALS [Suspect]
     Active Substance: NITROFURANTOIN\NITROFURANTOIN MONOHYDRATE
     Indication: URINARY TRACT INFECTION
     Dosage: 1 PILL TWICE DAILY TAKEN BY MOUTH
     Route: 048
     Dates: start: 20150413, end: 20150419

REACTIONS (8)
  - Pyrexia [None]
  - Arthralgia [None]
  - Cough [None]
  - Chest pain [None]
  - Myalgia [None]
  - Odynophagia [None]
  - Painful respiration [None]
  - Chills [None]

NARRATIVE: CASE EVENT DATE: 20150419
